FAERS Safety Report 8395902-8 (Version None)
Quarter: 2012Q2

REPORT INFORMATION
  Report Type: 
  Country: None (occurrence: None)
  Receive Date: 20120530
  Receipt Date: 20120524
  Transmission Date: 20120825
  Serious: Yes (Death, Hospitalization)
  Sender: FDA-Public Use
  Company Number: CA-ROCHE-1060013

PATIENT
  Sex: Male

DRUGS (11)
  1. LAX-A-DAY [Concomitant]
     Route: 065
  2. VEMURAFENIB [Suspect]
     Dates: start: 20120423
  3. NORVASC [Concomitant]
     Route: 065
  4. POTASSIUM CHLORIDE [Concomitant]
     Route: 065
  5. FENTANYL-100 [Concomitant]
     Route: 065
  6. BISACODYL [Concomitant]
     Route: 065
  7. VEMURAFENIB [Suspect]
     Indication: METASTATIC MALIGNANT MELANOMA
     Route: 048
     Dates: start: 20120323, end: 20120422
  8. DILAUDID [Concomitant]
     Route: 065
  9. ZOFRAN [Concomitant]
     Route: 065
  10. LACTULOSE [Concomitant]
     Route: 065
  11. SOFLAX (CANADA) [Concomitant]
     Route: 065

REACTIONS (3)
  - HIP FRACTURE [None]
  - RASH [None]
  - DEATH [None]
